FAERS Safety Report 9045585 (Version 1)
Quarter: 2013Q1

REPORT INFORMATION
  Report Type: Report from Study
  Country: US (occurrence: US)
  Receive Date: 20130131
  Receipt Date: 20130131
  Transmission Date: 20140127
  Serious: Yes (Hospitalization)
  Sender: FDA-Public Use
  Company Number: US-ABBOTT-12P-163-1010335-00

PATIENT
  Sex: Female
  Weight: 129.39 kg

DRUGS (14)
  1. HUMIRA [Suspect]
     Indication: RHEUMATOID ARTHRITIS
     Route: 058
     Dates: start: 2012
  2. LASIX [Concomitant]
     Indication: OEDEMA PERIPHERAL
  3. METHADONE [Concomitant]
     Indication: PAIN
  4. HYDROCODONE [Concomitant]
     Indication: BREAKTHROUGH PAIN
  5. ROBAXIN [Concomitant]
     Indication: BACK PAIN
  6. GABAPENTIN [Concomitant]
     Indication: PAIN IN EXTREMITY
  7. TRAZODONE [Concomitant]
     Indication: INSOMNIA
     Dosage: AT BED TIME
  8. AMBIEN [Concomitant]
     Indication: INSOMNIA
     Dosage: AT BED TIME (ALTERNATE WITH RESTORIL)
  9. RESTORIL [Concomitant]
     Indication: INSOMNIA
     Dosage: AT BED TIME (ALTERNATE WITH AMBIEN)
  10. CARVEDILOL [Concomitant]
     Indication: AORTIC VALVE DISEASE
  11. POTASSIUM CHLORIDE [Concomitant]
     Indication: PRODUCT USED FOR UNKNOWN INDICATION
  12. LISINOPRIL [Concomitant]
     Indication: HYPERTENSION
  13. AMOXICILLIN [Concomitant]
     Indication: URINARY TRACT INFECTION
  14. IMURAN [Concomitant]
     Indication: PAIN

REACTIONS (6)
  - Osteoarthritis [Recovered/Resolved]
  - Gait disturbance [Not Recovered/Not Resolved]
  - Arthropod sting [Unknown]
  - Tachycardia [Unknown]
  - Aortic stenosis [Unknown]
  - Bicuspid aortic valve [Unknown]
